FAERS Safety Report 4897413-0 (Version None)
Quarter: 2006Q1

REPORT INFORMATION
  Report Type: 
  Country: None (occurrence: None)
  Receive Date: 20060130
  Receipt Date: 20060130
  Transmission Date: 20060701
  Serious: No
  Sender: FDA-Public Use
  Company Number: None

PATIENT
  Sex: Female
  Weight: 52 kg

DRUGS (2)
  1. BEVACIZUMAB [Suspect]
     Indication: METASTASIS
     Dosage: 15MG/KG -806MG, 834MG, 780MG ONCE EVERY 3 WEEKS  IV DRIP
     Route: 041
     Dates: start: 20051128, end: 20060109
  2. BEVACIZUMAB [Suspect]
     Indication: TRANSITIONAL CELL CARCINOMA
     Dosage: 15MG/KG -806MG, 834MG, 780MG ONCE EVERY 3 WEEKS  IV DRIP
     Route: 041
     Dates: start: 20051128, end: 20060109

REACTIONS (10)
  - ASTHENIA [None]
  - CONFUSIONAL STATE [None]
  - DYSARTHRIA [None]
  - FATIGUE [None]
  - FOAMING AT MOUTH [None]
  - GRAND MAL CONVULSION [None]
  - HEADACHE [None]
  - HYPERTENSIVE ENCEPHALOPATHY [None]
  - LOSS OF CONSCIOUSNESS [None]
  - VOMITING [None]
